FAERS Safety Report 10066617 (Version 2)
Quarter: 2014Q2

REPORT INFORMATION
  Report Type: Spontaneous
  Country: PL (occurrence: PL)
  Receive Date: 20140408
  Receipt Date: 20140429
  Transmission Date: 20141212
  Serious: Yes (Hospitalization)
  Sender: FDA-Public Use
  Company Number: PL-GE HEALTHCARE MEDICAL DIAGNOSTICS-VISP-PR-1403S-0150

PATIENT
  Age: 47 Year
  Sex: Female
  Weight: 67 kg

DRUGS (6)
  1. VISIPAQUE [Suspect]
     Indication: ANEURYSM
     Route: 013
     Dates: start: 20140314, end: 20140314
  2. VISIPAQUE [Suspect]
     Indication: DIAGNOSTIC PROCEDURE
  3. SEDAM [Concomitant]
  4. LIGOCAINUM HYDROCHLORICUM [Concomitant]
     Indication: LOCAL ANAESTHESIA
  5. HEPARINUM NATRICUM [Concomitant]
  6. SALINE [Concomitant]

REACTIONS (7)
  - Urticaria [Recovering/Resolving]
  - Erythema [Recovering/Resolving]
  - Face oedema [Recovering/Resolving]
  - Rash maculo-papular [Recovering/Resolving]
  - Blister [Recovering/Resolving]
  - Haemorrhagic disorder [Recovering/Resolving]
  - Skin erosion [Recovering/Resolving]
